FAERS Safety Report 9477789 (Version 1)
Quarter: 2013Q3

REPORT INFORMATION
  Report Type: Report from Study
  Country: US (occurrence: US)
  Receive Date: 20130827
  Receipt Date: 20130827
  Transmission Date: 20140515
  Serious: Yes (Other)
  Sender: FDA-Public Use
  Company Number: US-BRISTOL-MYERS SQUIBB COMPANY-19201144

PATIENT
  Age: 41 Year
  Sex: Female
  Weight: 98.1 kg

DRUGS (21)
  1. SPRYCEL [Suspect]
     Indication: ACUTE LYMPHOCYTIC LEUKAEMIA
     Route: 048
     Dates: start: 20130701
  2. MESNA [Suspect]
     Dates: start: 20130612
  3. CYCLOPHOSPHAMIDE [Suspect]
     Dates: start: 20130613
  4. CYCLOPHOSPHAMIDE [Suspect]
     Dates: start: 20130613
  5. DOXORUBICIN HCL [Suspect]
     Dates: start: 20130613
  6. VINCRISTINE SULFATE [Suspect]
     Dates: start: 20130520
  7. DEXAMETHASONE [Suspect]
     Dates: start: 20130613
  8. G-CSF [Suspect]
     Route: 058
     Dates: start: 20130517
  9. METHOTREXATE [Suspect]
     Dates: start: 20130611
  10. METHYLPREDNISOLONE [Suspect]
     Dates: start: 20130523
  11. LEUCOVORIN CALCIUM [Suspect]
     Dates: start: 20130524
  12. CLARITIN [Concomitant]
  13. CYMBALTA [Concomitant]
  14. LEVOTHYROID [Concomitant]
  15. LISINOPRIL [Concomitant]
  16. MAGNESIUM OXIDE [Concomitant]
  17. OXYCODONE [Concomitant]
  18. PAXIL [Concomitant]
  19. POTASSIUM CHLORIDE [Concomitant]
  20. PROVERA [Concomitant]
  21. SEROQUEL [Concomitant]

REACTIONS (1)
  - Sepsis [Recovering/Resolving]
